FAERS Safety Report 8303838 (Version 2)
Quarter: 2013Q4

REPORT INFORMATION
  Report Type: Spontaneous
  Country: GB (occurrence: GB)
  Receive Date: 20111221
  Receipt Date: 20131231
  Transmission Date: 20140711
  Serious: Yes (Other)
  Sender: FDA-Public Use
  Company Number: GB-RANBAXY-2011US-51294

PATIENT
  Sex: 0

DRUGS (1)
  1. PARACETAMOL [Suspect]
     Indication: PRODUCT USED FOR UNKNOWN INDICATION
     Dosage: UNK, UNK
     Route: 048

REACTIONS (7)
  - Toxicity to various agents [Unknown]
  - Metabolic acidosis [Unknown]
  - Hepatic failure [Unknown]
  - Hypotension [Unknown]
  - Vasoconstriction [Unknown]
  - Dehydration [Unknown]
  - Hypoglycaemia [Recovering/Resolving]
